FAERS Safety Report 16203539 (Version 1)
Quarter: 2019Q2

REPORT INFORMATION
  Report Type: Spontaneous
  Country: HR (occurrence: HR)
  Receive Date: 20190416
  Receipt Date: 20190416
  Transmission Date: 20190711
  Serious: Yes (Other)
  Sender: FDA-Public Use
  Company Number: HR-ENDO PHARMACEUTICALS INC-2019-103782

PATIENT
  Age: 28 Year
  Sex: Male

DRUGS (3)
  1. AVEED [Suspect]
     Active Substance: TESTOSTERONE UNDECANOATE
     Dosage: UNK UNKNOWN, UNKNOWN
     Route: 030
  2. AVEED [Suspect]
     Active Substance: TESTOSTERONE UNDECANOATE
     Indication: ANDROGEN DEFICIENCY
     Dosage: 1 DF, ONCE EVERY 6WKS (FIRST TWO INJECTIONS)
     Route: 030
  3. INVESTIGATIONAL DRUG [Concomitant]
     Active Substance: INVESTIGATIONAL PRODUCT
     Indication: IN VITRO FERTILISATION
     Dosage: UNK UNKNOWN, UNKNOWN
     Route: 065

REACTIONS (2)
  - Secondary hypogonadism [Not Recovered/Not Resolved]
  - Azoospermia [Not Recovered/Not Resolved]
